FAERS Safety Report 20113077 (Version 4)
Quarter: 2022Q4

REPORT INFORMATION
  Report Type: Spontaneous
  Country: JP (occurrence: None)
  Receive Date: 20211125
  Receipt Date: 20221226
  Transmission Date: 20230113
  Serious: Yes (Death, Life-Threatening, Other)
  Sender: FDA-Public Use
  Company Number: 2021A208627

PATIENT
  Age: 32462 Day
  Sex: Female
  Weight: 38 kg

DRUGS (11)
  1. ROXADUSTAT [Suspect]
     Active Substance: ROXADUSTAT
     Indication: Nephrogenic anaemia
     Route: 048
     Dates: start: 20210222, end: 20210301
  2. ROXADUSTAT [Suspect]
     Active Substance: ROXADUSTAT
     Indication: Nephrogenic anaemia
     Route: 048
     Dates: start: 20210301, end: 20210329
  3. NEXIUM [Suspect]
     Active Substance: ESOMEPRAZOLE MAGNESIUM
     Indication: Gastrooesophageal reflux disease
     Route: 048
     Dates: start: 20191230, end: 20210104
  4. DARBEPOETIN ALFA [Concomitant]
     Active Substance: DARBEPOETIN ALFA
     Indication: Product used for unknown indication
     Route: 065
  5. GASLON [Concomitant]
     Active Substance: IRSOGLADINE MALEATE
     Indication: Gastric ulcer
     Route: 048
     Dates: start: 20191225, end: 20210409
  6. POTASSIUM GLUCONATE [Concomitant]
     Active Substance: POTASSIUM GLUCONATE
     Indication: Hypokalaemia
     Route: 048
     Dates: start: 20191225, end: 20210409
  7. SINGULAIR [Concomitant]
     Active Substance: MONTELUKAST SODIUM
     Indication: Asthma
     Route: 048
     Dates: start: 20191230, end: 20210409
  8. ROZEREM [Concomitant]
     Active Substance: RAMELTEON
     Indication: Insomnia
     Route: 048
     Dates: start: 20191230, end: 20210409
  9. HUMAN RED BLOOD CELL [Concomitant]
     Active Substance: HUMAN RED BLOOD CELL
     Indication: Product used for unknown indication
     Dosage: 2 DF DOSAGE FORM
     Route: 065
     Dates: start: 20210308, end: 20210308
  10. PIPERACILLIN SODIUM\TAZOBACTAM SODIUM [Concomitant]
     Active Substance: PIPERACILLIN SODIUM\TAZOBACTAM SODIUM
     Indication: Pneumonia
     Dosage: 4.5 G GRAM(S) 0 .5 / DAY
     Route: 041
     Dates: start: 20210322, end: 20210409
  11. PLATELETS [Concomitant]
     Active Substance: HUMAN PLATELET, ALLOGENIC
     Indication: Thrombocytopenia
     Dosage: 15 DF DOSAGE FORM
     Route: 065
     Dates: start: 20210329, end: 20210329

REACTIONS (6)
  - Multiple organ dysfunction syndrome [Fatal]
  - Pneumonia [Fatal]
  - Thrombocytopenia [Fatal]
  - Hepatic function abnormal [Fatal]
  - Product use issue [Unknown]
  - Off label use [Unknown]

NARRATIVE: CASE EVENT DATE: 20210301
